FAERS Safety Report 10056620 (Version 1)
Quarter: 2014Q2

REPORT INFORMATION
  Report Type: Spontaneous
  Country: US (occurrence: None)
  Receive Date: 20140401
  Receipt Date: 20140401
  Transmission Date: 20141212
  Serious: Yes (Other)
  Sender: FDA-Public Use
  Company Number: 2014-US-003609

PATIENT
  Sex: Female

DRUGS (1)
  1. XYREM [Suspect]
     Indication: FOETAL EXPOSURE DURING PREGNANCY

REACTIONS (2)
  - Nervous system disorder [None]
  - Maternal drugs affecting foetus [None]
